FAERS Safety Report 11524290 (Version 5)
Quarter: 2016Q1

REPORT INFORMATION
  Report Type: Report from Study
  Country: US (occurrence: US)
  Receive Date: 20150918
  Receipt Date: 20160216
  Transmission Date: 20160525
  Serious: Yes (Hospitalization, Other)
  Sender: FDA-Public Use
  Company Number: US-JNJFOC-20150914567

PATIENT
  Age: 86 Year
  Sex: Female
  Weight: 50 kg

DRUGS (9)
  1. IMBRUVICA [Suspect]
     Active Substance: IBRUTINIB
     Indication: CHRONIC LYMPHOCYTIC LEUKAEMIA
     Route: 048
     Dates: start: 20150428, end: 20150912
  2. SYNTHROID [Concomitant]
     Active Substance: LEVOTHYROXINE SODIUM
  3. TAGAMET [Concomitant]
     Active Substance: CIMETIDINE
  4. IMBRUVICA [Suspect]
     Active Substance: IBRUTINIB
     Indication: THERAPY NAIVE
     Route: 048
     Dates: start: 20150428, end: 20150912
  5. IMBRUVICA [Suspect]
     Active Substance: IBRUTINIB
     Indication: LYMPHOCYTOSIS
     Route: 048
     Dates: start: 20150428, end: 20150912
  6. LEVOFLOXACIN. [Concomitant]
     Active Substance: LEVOFLOXACIN
  7. CLARITIN [Concomitant]
     Active Substance: LORATADINE
  8. MIRALAX [Concomitant]
     Active Substance: POLYETHYLENE GLYCOL 3350
  9. ASPIRIN. [Concomitant]
     Active Substance: ASPIRIN

REACTIONS (5)
  - Hypertension [Unknown]
  - Off label use [Unknown]
  - Asthenia [Unknown]
  - Transient ischaemic attack [Recovered/Resolved]
  - Loss of consciousness [Unknown]

NARRATIVE: CASE EVENT DATE: 2015
